FAERS Safety Report 8086901-4 (Version None)
Quarter: 2012Q1

REPORT INFORMATION
  Report Type: 
  Country: None (occurrence: None)
  Receive Date: 20120128
  Receipt Date: 20110615
  Transmission Date: 20120608
  Serious: No
  Sender: FDA-Public Use
  Company Number: US-ABBOTT-11P-163-0732453-00

PATIENT
  Sex: Female
  Weight: 76.272 kg

DRUGS (5)
  1. XANAX [Concomitant]
     Indication: INSOMNIA
  2. HUMIRA [Suspect]
     Indication: RHEUMATOID ARTHRITIS
     Dates: start: 20050101, end: 20110525
  3. ATENOLOL [Concomitant]
     Indication: HYPERTENSION
  4. FOLIC ACID [Concomitant]
     Indication: VITAMIN SUPPLEMENTATION
  5. ARAVA [Concomitant]
     Indication: RHEUMATOID ARTHRITIS

REACTIONS (2)
  - PAIN [None]
  - SINUSITIS [None]
